FAERS Safety Report 5623093-2 (Version None)
Quarter: 2008Q1

REPORT INFORMATION
  Report Type: 
  Country: None (occurrence: None)
  Receive Date: 20080212
  Receipt Date: 20080129
  Transmission Date: 20080703
  Serious: Yes (Other)
  Sender: FDA-Public Use
  Company Number: SE-GENENTECH-255311

PATIENT
  Sex: Female
  Weight: 80.3 kg

DRUGS (5)
  1. BEVACIZUMAB [Suspect]
     Indication: BREAST CANCER METASTATIC
     Dosage: 15 MG/KG, Q3W
     Route: 042
     Dates: start: 20070301
  2. DOCETAXEL [Suspect]
     Indication: BREAST CANCER METASTATIC
     Dosage: 190 MG, Q3W
     Route: 042
     Dates: start: 20070301
  3. DOCETAXEL [Suspect]
     Dosage: 140 MG, Q3W
     Route: 042
     Dates: start: 20070322
  4. DOCETAXEL [Suspect]
     Dosage: 114 MG, Q3W
     Route: 042
     Dates: start: 20070612
  5. COZAAR [Concomitant]
     Indication: DRUG USE FOR UNKNOWN INDICATION
     Dates: start: 20071128

REACTIONS (1)
  - VITREOUS DETACHMENT [None]
